FAERS Safety Report 23576668 (Version 2)
Quarter: 2025Q1

REPORT INFORMATION
  Report Type: Spontaneous
  Country: IT (occurrence: IT)
  Receive Date: 20240228
  Receipt Date: 20250127
  Transmission Date: 20250409
  Serious: Yes (Hospitalization)
  Sender: SANDOZ
  Company Number: IT-AMGEN-ITASP2023231602

PATIENT
  Age: 49 Year
  Sex: Male

DRUGS (4)
  1. ADALIMUMAB [Suspect]
     Active Substance: ADALIMUMAB
     Indication: Psoriatic arthropathy
     Route: 065
  2. ADALIMUMAB [Suspect]
     Active Substance: ADALIMUMAB
     Indication: Psoriasis
  3. CYCLOSPORINE [Concomitant]
     Active Substance: CYCLOSPORINE
     Indication: Product used for unknown indication
     Route: 065
  4. METHOTREXATE [Concomitant]
     Active Substance: METHOTREXATE
     Indication: Product used for unknown indication
     Route: 065

REACTIONS (8)
  - Renal tubular necrosis [Recovered/Resolved]
  - Henoch-Schonlein purpura [Unknown]
  - Vascular device infection [Unknown]
  - IgA nephropathy [Recovered/Resolved]
  - Hypertension [Unknown]
  - Weight increased [Unknown]
  - Acute kidney injury [Recovered/Resolved]
  - Psoriasis [Unknown]
